FAERS Safety Report 5585828-7 (Version None)
Quarter: 2007Q4

REPORT INFORMATION
  Report Type: 
  Country: None (occurrence: None)
  Receive Date: 20071205
  Receipt Date: 20070102
  Transmission Date: 20080405
  Serious: Yes (Hospitalization, Other)
  Sender: FDA-Public Use
  Company Number: HQWYE696108JAN07

PATIENT

DRUGS (1)
  1. EFFEXOR XR [Suspect]
     Dosage: TRANSPLACENTAL
     Route: 064

REACTIONS (2)
  - CONVULSION NEONATAL [None]
  - CYANOSIS NEONATAL [None]
